FAERS Safety Report 15965371 (Version 1)
Quarter: 2019Q1

REPORT INFORMATION
  Report Type: Spontaneous
  Country: FR (occurrence: FR)
  Receive Date: 20190215
  Receipt Date: 20190215
  Transmission Date: 20190418
  Serious: Yes (Hospitalization)
  Sender: FDA-Public Use
  Company Number: FR-TEVA-2019-FR-1010844

PATIENT
  Age: 37 Year
  Sex: Female
  Weight: 90 kg

DRUGS (4)
  1. AUBAGIO [Suspect]
     Active Substance: TERIFLUNOMIDE
     Indication: RELAPSING-REMITTING MULTIPLE SCLEROSIS
     Dosage: 1 DOSAGE FORMS DAILY;
     Route: 048
     Dates: start: 201703
  2. LEVOCARNIL [Concomitant]
     Active Substance: LEVOCARNITINE
     Dosage: 3 DOSAGE FORMS DAILY;
     Route: 048
     Dates: start: 201712
  3. EFFIZINC 15 MG, G?LULE [Concomitant]
     Dosage: 2 DOSAGE FORMS DAILY;
     Route: 048
     Dates: start: 201704
  4. IBUPROFENE [Suspect]
     Active Substance: IBUPROFEN
     Indication: TONSILLITIS
     Dosage: 120 MILLIGRAM DAILY;
     Route: 048
     Dates: start: 20181025, end: 20181027

REACTIONS (2)
  - Cellulitis [Recovered/Resolved]
  - Pharyngeal abscess [Recovered/Resolved]

NARRATIVE: CASE EVENT DATE: 20181027
